FAERS Safety Report 5084152-9 (Version None)
Quarter: 2006Q3

REPORT INFORMATION
  Report Type: 
  Country: None (occurrence: None)
  Receive Date: 20060821
  Receipt Date: 20060815
  Transmission Date: 20061208
  Serious: Yes (Hospitalization)
  Sender: FDA-Public Use
  Company Number: DE-BAYER-200611060BVD

PATIENT
  Sex: Male
  Weight: 68 kg

DRUGS (11)
  1. SORAFENIB [Suspect]
     Indication: RENAL CELL CARCINOMA STAGE UNSPECIFIED
     Dosage: TOTAL DAILY DOSE: 800 MG
     Route: 048
     Dates: start: 20060203, end: 20060721
  2. OXIS [Concomitant]
     Route: 055
     Dates: start: 20050501, end: 20060721
  3. SPIRIVA [Concomitant]
     Route: 055
     Dates: start: 20050501, end: 20060721
  4. ALLOPURINOL [Concomitant]
     Route: 048
     Dates: start: 20060101, end: 20060725
  5. ANTIFUNGAL SOLUTION [Concomitant]
     Route: 003
     Dates: start: 20051201, end: 20060721
  6. PERAZIN [Concomitant]
     Route: 048
     Dates: start: 20010101
  7. METOPROLOL TARTRATE [Concomitant]
     Route: 048
     Dates: start: 20060209
  8. IMODIUM AD [Concomitant]
     Route: 048
     Dates: start: 20060321, end: 20060709
  9. PANTOZOL [Concomitant]
     Route: 048
     Dates: start: 20060627
  10. DURAGESIC-100 [Concomitant]
     Route: 065
     Dates: start: 20060627
  11. SEVREDOL [Concomitant]
     Route: 065
     Dates: start: 20060627, end: 20060721

REACTIONS (9)
  - DEHYDRATION [None]
  - ENTERITIS [None]
  - GENERAL PHYSICAL HEALTH DETERIORATION [None]
  - HYPERCALCAEMIA [None]
  - HYPONATRAEMIA [None]
  - INTRACRANIAL PRESSURE INCREASED [None]
  - METASTASES TO CENTRAL NERVOUS SYSTEM [None]
  - RENAL FAILURE ACUTE [None]
  - SOMNOLENCE [None]
